FAERS Safety Report 16009938 (Version 2)
Quarter: 2019Q2

REPORT INFORMATION
  Report Type: Spontaneous
  Country: JP (occurrence: JP)
  Receive Date: 20190227
  Receipt Date: 20190430
  Transmission Date: 20190711
  Serious: Yes (Hospitalization)
  Sender: FDA-Public Use
  Company Number: JP-ROCHE-2272929

PATIENT
  Age: 70 Year
  Sex: Male
  Weight: 73 kg

DRUGS (1)
  1. TECENTRIQ [Suspect]
     Active Substance: ATEZOLIZUMAB
     Indication: LUNG ADENOCARCINOMA
     Route: 041
     Dates: start: 20181018, end: 20181018

REACTIONS (1)
  - Asthma [Recovering/Resolving]

NARRATIVE: CASE EVENT DATE: 20181027
